FAERS Safety Report 5382822-6 (Version None)
Quarter: 2007Q3

REPORT INFORMATION
  Report Type: 
  Country: None (occurrence: None)
  Receive Date: 20070710
  Receipt Date: 20070626
  Transmission Date: 20080115
  Serious: Yes (Hospitalization)
  Sender: FDA-Public Use
  Company Number: US-ELI_LILLY_AND_COMPANY-US200706006352

PATIENT
  Sex: Male

DRUGS (4)
  1. FORTEO [Suspect]
     Indication: OSTEOPOROSIS
     Dates: start: 20070502
  2. VICODIN [Concomitant]
     Indication: PAIN
  3. TYLENOL                                 /SCH/ [Concomitant]
     Indication: PAIN
  4. VYTORIN [Concomitant]
     Dosage: UNK, UNK
     Dates: start: 19950101, end: 20070101

REACTIONS (2)
  - ARTHRALGIA [None]
  - IMPLANTABLE DEFIBRILLATOR INSERTION [None]
